FAERS Safety Report 6719688-5 (Version None)
Quarter: 2010Q2

REPORT INFORMATION
  Report Type: 
  Country: None (occurrence: None)
  Receive Date: 20100511
  Receipt Date: 20100429
  Transmission Date: 20101027
  Serious: Yes (Other)
  Sender: FDA-Public Use
  Company Number: RU-SANOFI-AVENTIS-2010SA024949

PATIENT
  Age: 49 Year
  Sex: Female

DRUGS (6)
  1. PLAVIX [Suspect]
     Indication: STENT PLACEMENT
     Route: 048
     Dates: start: 20080101
  2. CONCOR [Concomitant]
     Indication: DRUG USE FOR UNKNOWN INDICATION
  3. MAGNYL /OLD FORM/ ^DAK^ [Concomitant]
     Indication: DRUG USE FOR UNKNOWN INDICATION
  4. INDAPAMIDE/PERINDOPRIL [Concomitant]
     Indication: DRUG USE FOR UNKNOWN INDICATION
  5. AMLODIPINE [Concomitant]
     Indication: DRUG USE FOR UNKNOWN INDICATION
  6. SIMVASTATIN [Concomitant]
     Indication: DRUG USE FOR UNKNOWN INDICATION

REACTIONS (3)
  - ANGINA PECTORIS [None]
  - ASTHENIA [None]
  - BLOOD PRESSURE DECREASED [None]
